FAERS Safety Report 10041179 (Version 1)
Quarter: 2014Q1

REPORT INFORMATION
  Report Type: Spontaneous
  Country: FR (occurrence: FR)
  Receive Date: 20140327
  Receipt Date: 20140327
  Transmission Date: 20141002
  Serious: Yes (Life-Threatening, Hospitalization)
  Sender: FDA-Public Use
  Company Number: FR-PFIZER INC-2014083164

PATIENT
  Age: 47 Year
  Sex: Female

DRUGS (12)
  1. TENORMIN [Suspect]
     Dosage: 50 MG, 1X/DAY
     Route: 048
  2. TENORMIN [Suspect]
     Dosage: UNK
     Route: 048
     Dates: start: 20140217
  3. SERTRALINE [Interacting]
     Dosage: 1 DF, 1X/DAY
     Route: 048
  4. SERTRALINE [Interacting]
     Dosage: UNK
     Route: 048
     Dates: start: 20140214, end: 20140214
  5. ZOLPIDEM TARTRATE [Interacting]
     Dosage: 1 DF, 1X/DAY
     Route: 048
  6. ZOLPIDEM TARTRATE [Interacting]
     Dosage: UNK
     Route: 048
     Dates: start: 20140214, end: 20140214
  7. LEXOMIL [Interacting]
     Dosage: 2 DF, 1X/DAY
     Route: 048
  8. LEXOMIL [Interacting]
     Dosage: UNK
     Route: 048
     Dates: start: 20140214, end: 20140214
  9. LEVOCETIRIZINE [Interacting]
     Dosage: UNK
     Route: 048
  10. THERALENE [Interacting]
     Dosage: 60 GTT (4%), 1X/DAY
     Route: 048
  11. ALCOHOL [Suspect]
     Dosage: UNK
     Route: 048
  12. TRAMADOL [Concomitant]
     Route: 065

REACTIONS (8)
  - Coma [Recovering/Resolving]
  - Hypotension [Recovering/Resolving]
  - Drug interaction [Recovering/Resolving]
  - Toxicity to various agents [Recovering/Resolving]
  - Pneumonia aspiration [Recovering/Resolving]
  - Pneumonia haemophilus [Recovering/Resolving]
  - Pneumonia streptococcal [Recovering/Resolving]
  - Excoriation [Unknown]
